FAERS Safety Report 23515152 (Version 4)
Quarter: 2025Q2

REPORT INFORMATION
  Report Type: Spontaneous
  Country: US (occurrence: US)
  Receive Date: 20240213
  Receipt Date: 20250403
  Transmission Date: 20250717
  Serious: No
  Sender: ABBVIE
  Company Number: US-ABBVIE-5624331

PATIENT
  Sex: Female
  Weight: 90.718 kg

DRUGS (1)
  1. LILETTA [Suspect]
     Active Substance: LEVONORGESTREL
     Indication: Prophylaxis
     Dosage: EVERY 6 YEARS
     Route: 015
     Dates: start: 2022, end: 20240111

REACTIONS (4)
  - Maternal exposure during pregnancy [Unknown]
  - Drug ineffective [Unknown]
  - Normal newborn [Unknown]
  - Pregnancy on contraceptive [Unknown]
